FAERS Safety Report 14423673 (Version 1)
Quarter: 2018Q1

REPORT INFORMATION
  Report Type: Spontaneous
  Country: US (occurrence: US)
  Receive Date: 20180123
  Receipt Date: 20180123
  Transmission Date: 20180509
  Serious: No
  Sender: FDA-Public Use
  Company Number: US-TEVA-2018-US-849088

PATIENT
  Sex: Female

DRUGS (1)
  1. DESVETAB-A [Suspect]
     Active Substance: DESVENLAFAXINE
     Route: 065
     Dates: start: 201801

REACTIONS (1)
  - Abdominal distension [Unknown]

NARRATIVE: CASE EVENT DATE: 201801
